FAERS Safety Report 7319254-7 (Version None)
Quarter: 2011Q1

REPORT INFORMATION
  Report Type: 
  Country: None (occurrence: None)
  Receive Date: 20110216
  Receipt Date: 20110207
  Transmission Date: 20110831
  Serious: Yes (Hospitalization)
  Sender: FDA-Public Use
  Company Number: 027036

PATIENT
  Sex: Female
  Weight: 58 kg

DRUGS (5)
  1. SPIRVA [Concomitant]
  2. CIMZIA [Suspect]
     Indication: RHEUMATOID ARTHRITIS
     Dosage: (200 MG, NUMBER OF DOSES: 19 SUBCUTANEOUS) ; (SUBCUTANEOUS)
     Route: 058
     Dates: start: 20100212, end: 20110112
  3. CIMZIA [Suspect]
     Indication: RHEUMATOID ARTHRITIS
     Dosage: (200 MG, NUMBER OF DOSES: 19 SUBCUTANEOUS) ; (SUBCUTANEOUS)
     Route: 058
     Dates: start: 20110131
  4. SYMBICORT [Concomitant]
  5. INSULIN [Concomitant]

REACTIONS (1)
  - PNEUMONIA [None]
